FAERS Safety Report 21218488 (Version 1)
Quarter: 2022Q3

REPORT INFORMATION
  Report Type: Spontaneous
  Country: US (occurrence: US)
  Receive Date: 20220816
  Receipt Date: 20220816
  Transmission Date: 20221027
  Serious: No
  Sender: FDA-Public Use
  Company Number: US-SA-SAC20220812001779

PATIENT
  Sex: Female

DRUGS (4)
  1. AUBAGIO [Suspect]
     Active Substance: TERIFLUNOMIDE
     Indication: Multiple sclerosis
     Dosage: UNK
     Route: 065
  2. OCREVUS [Concomitant]
     Active Substance: OCRELIZUMAB
  3. OCREVUS [Concomitant]
     Active Substance: OCRELIZUMAB
  4. ACETAZOLAMIDE [Concomitant]
     Active Substance: ACETAZOLAMIDE

REACTIONS (1)
  - Headache [Not Recovered/Not Resolved]
